FAERS Safety Report 9927113 (Version 2)
Quarter: 2014Q1

REPORT INFORMATION
  Report Type: Spontaneous
  Country: JP (occurrence: JP)
  Receive Date: 20140226
  Receipt Date: 20140226
  Transmission Date: 20141002
  Serious: Yes (Hospitalization)
  Sender: FDA-Public Use
  Company Number: JP-B.I. PHARMACEUTICALS,INC./RIDGEFIELD-2013-BI-42826NB

PATIENT
  Age: 67 Year
  Sex: Male

DRUGS (1)
  1. PRAZAXA [Suspect]
     Indication: PRODUCT USED FOR UNKNOWN INDICATION
     Dosage: 300 MG
     Route: 048
     Dates: start: 201205, end: 20131217

REACTIONS (3)
  - Diabetes mellitus [Unknown]
  - Blood creatinine decreased [Unknown]
  - Activated partial thromboplastin time prolonged [Unknown]
